FAERS Safety Report 24177177 (Version 1)
Quarter: 2024Q3

REPORT INFORMATION
  Report Type: Spontaneous
  Country: US (occurrence: US)
  Receive Date: 20240806
  Receipt Date: 20240806
  Transmission Date: 20241016
  Serious: Yes (Hospitalization)
  Sender: AMNEAL
  Company Number: US-AMNEAL-2024-AMRX-02066

PATIENT
  Age: 22 Year
  Sex: Female

DRUGS (1)
  1. BACLOFEN [Suspect]
     Active Substance: BACLOFEN
     Indication: Product used for unknown indication
     Dosage: 2000 MCG/ML, 550 MCG/DAY
     Route: 037

REACTIONS (3)
  - Drug withdrawal syndrome [Recovered/Resolved]
  - Device computer issue [Unknown]
  - Product administration interrupted [Unknown]

NARRATIVE: CASE EVENT DATE: 20240529
